FAERS Safety Report 12058960 (Version 1)
Quarter: 2016Q1

REPORT INFORMATION
  Report Type: Spontaneous
  Country: US (occurrence: None)
  Receive Date: 20160208
  Receipt Date: 20160208
  Transmission Date: 20160526
  Serious: No
  Sender: FDA-Public Use
  Company Number: None

PATIENT
  Age: 57 Year
  Sex: Male

DRUGS (1)
  1. REBIF REBIDOSE [Suspect]
     Active Substance: INTERFERON BETA-1A
     Indication: MULTIPLE SCLEROSIS
     Route: 058
     Dates: start: 20160107

REACTIONS (3)
  - Myalgia [None]
  - Fatigue [None]
  - Waist circumference increased [None]

NARRATIVE: CASE EVENT DATE: 201601
